FAERS Safety Report 7073957-0 (Version None)
Quarter: 2010Q4

REPORT INFORMATION
  Report Type: 
  Country: None (occurrence: None)
  Receive Date: 20101029
  Receipt Date: 20101020
  Transmission Date: 20110411
  Serious: Yes (Hospitalization, Other)
  Sender: FDA-Public Use
  Company Number: AU-JNJFOC-20100900401

PATIENT
  Sex: Male

DRUGS (2)
  1. RISPERDAL CONSTA [Suspect]
     Indication: SCHIZOPHRENIA
     Dosage: DOSE: 25 MG + 50 MG
     Route: 030
  2. OLANZAPINE [Concomitant]
     Route: 065

REACTIONS (7)
  - ACCIDENTAL EXPOSURE [None]
  - AGGRESSION [None]
  - DEVICE MALFUNCTION [None]
  - DEVICE OCCLUSION [None]
  - INAPPROPRIATE SCHEDULE OF DRUG ADMINISTRATION [None]
  - OVERDOSE [None]
  - SYRINGE ISSUE [None]
